FAERS Safety Report 18534053 (Version 1)
Quarter: 2020Q4

REPORT INFORMATION
  Report Type: Spontaneous
  Country: IN (occurrence: IN)
  Receive Date: 20201123
  Receipt Date: 20201123
  Transmission Date: 20210114
  Serious: Yes (Hospitalization, Other)
  Sender: FDA-Public Use
  Company Number: IN-PFIZER INC-2020455907

PATIENT
  Age: 23 Year
  Sex: Female
  Weight: 30.02 kg

DRUGS (12)
  1. LINEZOLID. [Suspect]
     Active Substance: LINEZOLID
     Indication: PULMONARY TUBERCULOSIS
     Dosage: 300 MG, DAILY
     Route: 048
     Dates: start: 20190829
  2. BUDAMATE [BUDESONIDE] [Concomitant]
     Indication: CHRONIC OBSTRUCTIVE PULMONARY DISEASE
     Dosage: 220 UG
     Dates: start: 20190829
  3. OMEPRAZOLE. [Concomitant]
     Active Substance: OMEPRAZOLE
     Indication: GASTRITIS
     Dosage: UNK
     Dates: start: 20190829
  4. PYRIDOXINE [Concomitant]
     Active Substance: PYRIDOXINE
     Indication: NEUROPATHY PERIPHERAL
     Dosage: UNK
     Dates: start: 20190829
  5. ONDANSETRON [Concomitant]
     Active Substance: ONDANSETRON
     Indication: VOMITING
     Dosage: 8 MG
     Dates: start: 20190829
  6. BEDAQUILINE [Suspect]
     Active Substance: BEDAQUILINE
     Indication: PULMONARY TUBERCULOSIS
     Dosage: 200 MG (200 MG THRICE WEEKLY)
     Route: 048
     Dates: start: 20190829
  7. METOCLOPRAMIDE. [Concomitant]
     Active Substance: METOCLOPRAMIDE
     Indication: VOMITING
     Dosage: UNK
     Dates: start: 20190829
  8. DELTYBA [Suspect]
     Active Substance: DELAMANID
     Indication: PULMONARY TUBERCULOSIS
     Dosage: 100 MG, 2X/DAY
     Route: 048
     Dates: start: 20190829
  9. GLYCOPYRRONIUM BROMIDE/INDACATEROL MALEATE [Concomitant]
     Active Substance: GLYCOPYRROLATE\INDACATEROL MALEATE
     Indication: CHRONIC OBSTRUCTIVE PULMONARY DISEASE
     Dosage: UNK
     Dates: start: 20190829
  10. CLOFAZIMINE [Suspect]
     Active Substance: CLOFAZIMINE
     Indication: PULMONARY TUBERCULOSIS
     Dosage: 100 MG, DAILY
     Route: 048
     Dates: start: 20190829
  11. PREGABALIN. [Concomitant]
     Active Substance: PREGABALIN
     Indication: NEUROPATHY PERIPHERAL
     Dosage: UNK
     Dates: start: 20190829
  12. AMITRIPTYLINE [Concomitant]
     Active Substance: AMITRIPTYLINE
     Indication: NEUROPATHY PERIPHERAL
     Dosage: UNK
     Dates: start: 20190829

REACTIONS (11)
  - Peripheral swelling [Unknown]
  - Off label use [Unknown]
  - Pulmonary arterial hypertension [Unknown]
  - Tricuspid valve incompetence [Unknown]
  - COVID-19 pneumonia [Recovering/Resolving]
  - Cough [Recovered/Resolved]
  - Chronic obstructive pulmonary disease [Recovering/Resolving]
  - Right ventricular dysfunction [Unknown]
  - Swelling [Recovered/Resolved]
  - Dyspnoea [Recovered/Resolved]
  - Hepatitis [Unknown]

NARRATIVE: CASE EVENT DATE: 20190829
